FAERS Safety Report 10388509 (Version 1)
Quarter: 2014Q3

REPORT INFORMATION
  Report Type: Spontaneous
  Country: US (occurrence: US)
  Receive Date: 20140815
  Receipt Date: 20140815
  Transmission Date: 20150326
  Serious: Yes (Other)
  Sender: FDA-Public Use
  Company Number: US-ABBVIE-14P-163-1270579-00

PATIENT
  Sex: Male

DRUGS (1)
  1. LEUPROLIDE ACETATE. [Suspect]
     Active Substance: LEUPROLIDE ACETATE
     Indication: PRODUCT USED FOR UNKNOWN INDICATION
     Route: 050
     Dates: start: 201308, end: 201308

REACTIONS (3)
  - Blood testosterone decreased [Unknown]
  - Hot flush [Unknown]
  - Radiotherapy [Unknown]

NARRATIVE: CASE EVENT DATE: 201312
